FAERS Safety Report 10904817 (Version 1)
Quarter: 2015Q1

REPORT INFORMATION
  Report Type: Spontaneous
  Country: DE (occurrence: FR)
  Receive Date: 20150311
  Receipt Date: 20150311
  Transmission Date: 20150721
  Serious: Yes (Hospitalization)
  Sender: FDA-Public Use
  Company Number: FR-MERZ NORTH AMERICA, INC.-15MRZ-00104

PATIENT
  Sex: Female

DRUGS (12)
  1. DIOSMIN [Concomitant]
     Active Substance: DIOSMIN
  2. LEVOTHYROX [Concomitant]
     Active Substance: LEVOTHYROXINE
  3. TANGANIL [Concomitant]
     Active Substance: ACETYLLEUCINE
  4. IMOVANE [Concomitant]
     Active Substance: ZOPICLONE
  5. INIPOMP [Concomitant]
     Active Substance: PANTOPRAZOLE SODIUM
  6. LAMALINE SUPPOSITORY [Concomitant]
  7. AETOXISCLERO TAMPONNE [Suspect]
     Active Substance: POLIDOCANOL
     Indication: VARICOSE VEIN
     Dosage: 2ML MILLILITERS SEPERATE DOSAGES:1
     Route: 042
     Dates: start: 20150129, end: 20150129
  8. LASILIX [Concomitant]
     Active Substance: FUROSEMIDE
  9. MOVICOL [Concomitant]
     Active Substance: POLYETHYLENE GLYCOL 3350\POTASSIUM CHLORIDE\SODIUM BICARBONATE\SODIUM CHLORIDE
  10. INNOVAIR [Concomitant]
     Active Substance: BECLOMETHASONE DIPROPIONATE\FORMOTEROL
  11. COUMADINE [Concomitant]
     Active Substance: WARFARIN SODIUM
     Dosage: 4MG
  12. TAHOR [Concomitant]
     Active Substance: ATORVASTATIN CALCIUM

REACTIONS (6)
  - Vomiting [None]
  - Phonophobia [None]
  - Photophobia [None]
  - Headache [None]
  - Nausea [None]
  - Hypertension [None]
